FAERS Safety Report 15851928 (Version 1)
Quarter: 2019Q1

REPORT INFORMATION
  Report Type: Spontaneous
  Country: US (occurrence: US)
  Receive Date: 20190122
  Receipt Date: 20190122
  Transmission Date: 20190417
  Serious: Yes (Other)
  Sender: FDA-Public Use
  Company Number: US-ASTRAZENECA-2019SE07722

PATIENT
  Age: 77 Year
  Sex: Female
  Weight: 67.1 kg

DRUGS (15)
  1. RUXOLITINIB [Suspect]
     Active Substance: RUXOLITINIB
     Indication: MYELOFIBROSIS
     Route: 065
     Dates: start: 20121026, end: 20121031
  2. METOPROLOL. [Suspect]
     Active Substance: METOPROLOL
     Route: 065
  3. GAVISCON [Concomitant]
     Active Substance: ALUMINUM HYDROXIDE\MAGNESIUM CARBONATE
  4. MELATONIN [Concomitant]
     Active Substance: MELATONIN
  5. RUXOLITINIB [Suspect]
     Active Substance: RUXOLITINIB
     Indication: MYELOFIBROSIS
     Route: 065
     Dates: start: 20171120
  6. DIPHENHYDRAMINE. [Concomitant]
     Active Substance: DIPHENHYDRAMINE
  7. UBIDECARENONE [Concomitant]
     Active Substance: UBIDECARENONE
  8. LUTEIN ZEAXANTHIN [Concomitant]
  9. ATORVASTATIN [Concomitant]
     Active Substance: ATORVASTATIN
  10. PRILOSEC [Suspect]
     Active Substance: OMEPRAZOLE MAGNESIUM
     Indication: ILL-DEFINED DISORDER
     Dosage: 1-3 TIMES WEEKLY
     Route: 048
  11. RUXOLITINIB [Suspect]
     Active Substance: RUXOLITINIB
     Indication: MYELOFIBROSIS
     Route: 065
     Dates: start: 20170726
  12. RUXOLITINIB [Suspect]
     Active Substance: RUXOLITINIB
     Indication: MYELOFIBROSIS
     Route: 065
     Dates: start: 20130205, end: 20130509
  13. RUXOLITINIB [Suspect]
     Active Substance: RUXOLITINIB
     Indication: MYELOFIBROSIS
     Route: 065
     Dates: start: 2013
  14. AMLODIPINE [Concomitant]
     Active Substance: AMLODIPINE BESYLATE
  15. LEAPS [Concomitant]

REACTIONS (18)
  - Haemolytic uraemic syndrome [Unknown]
  - Asthenia [Unknown]
  - Sinus disorder [Unknown]
  - Pain [Unknown]
  - Muscle spasms [Unknown]
  - Pain in extremity [Unknown]
  - Chest pain [Unknown]
  - Iron deficiency anaemia [Unknown]
  - Occult blood positive [Unknown]
  - Intermittent claudication [Unknown]
  - Anaemia [Unknown]
  - Oedema peripheral [Unknown]
  - Thrombocytopenia [Unknown]
  - Contusion [Unknown]
  - Osteopenia [Unknown]
  - Sleep apnoea syndrome [Unknown]
  - Pyrexia [Unknown]
  - Diarrhoea [Unknown]

NARRATIVE: CASE EVENT DATE: 201310
